FAERS Safety Report 5329220-9 (Version None)
Quarter: 2007Q2

REPORT INFORMATION
  Report Type: 
  Country: None (occurrence: None)
  Receive Date: 20070518
  Receipt Date: 20070507
  Transmission Date: 20071010
  Serious: Yes (Hospitalization)
  Sender: FDA-Public Use
  Company Number: JP-PFIZER INC-2007036161

PATIENT
  Age: 48 Year
  Sex: Female

DRUGS (14)
  1. CABASER [Suspect]
     Indication: PARKINSON'S DISEASE
  2. EC DOPARL [Concomitant]
  3. RIVOTRIL [Concomitant]
  4. INDERAL [Concomitant]
  5. PARLODEL [Concomitant]
  6. PERMAX [Concomitant]
  7. SYMMETREL [Concomitant]
  8. PURSENNID [Concomitant]
  9. SELEGILINE HYDROCHLORIDE [Concomitant]
  10. GASTER [Concomitant]
  11. MAG-LAX [Concomitant]
  12. LOXOPROFEN SODIUM [Concomitant]
  13. MUCOSTA [Concomitant]
  14. ENTACAPONE [Concomitant]

REACTIONS (2)
  - AORTIC VALVE INCOMPETENCE [None]
  - MITRAL VALVE INCOMPETENCE [None]
